FAERS Safety Report 7978214-3 (Version None)
Quarter: 2011Q4

REPORT INFORMATION
  Report Type: 
  Country: None (occurrence: None)
  Receive Date: 20111214
  Receipt Date: 20111201
  Transmission Date: 20120403
  Serious: Yes (Death)
  Sender: FDA-Public Use
  Company Number: US-RANBAXY-2011US-50903

PATIENT
  Age: 26 Year
  Sex: Female

DRUGS (3)
  1. TOPAMAX [Suspect]
     Indication: COMPLEX PARTIAL SEIZURES
     Dosage: UNK, UNK
     Route: 065
  2. ACETAMINOPHEN [Suspect]
     Indication: PRODUCT USED FOR UNKNOWN INDICATION
     Dosage: UNK, UNK
     Route: 048
  3. PHENYTOIN [Suspect]
     Indication: COMPLEX PARTIAL SEIZURES
     Dosage: UNK, UNK
     Route: 065

REACTIONS (7)
  - INTENTIONAL OVERDOSE [None]
  - BRAIN OEDEMA [None]
  - HEPATIC ENCEPHALOPATHY [None]
  - INTRACRANIAL PRESSURE INCREASED [None]
  - COMPLETED SUICIDE [None]
  - DRUG INTERACTION [None]
  - ACUTE HEPATIC FAILURE [None]
